FAERS Safety Report 7620372-4 (Version None)
Quarter: 2011Q3

REPORT INFORMATION
  Report Type: 
  Country: None (occurrence: None)
  Receive Date: 20110718
  Receipt Date: 20110718
  Transmission Date: 20111222
  Serious: Yes (Other)
  Sender: FDA-Public Use
  Company Number: None

PATIENT
  Age: 64 Year
  Sex: Male
  Weight: 95.254 kg

DRUGS (1)
  1. GLUCAGON [Suspect]
     Indication: HYPOGLYCAEMIA
     Dosage: 1 MG
     Route: 030
     Dates: start: 20110328, end: 20110328

REACTIONS (1)
  - LIQUID PRODUCT PHYSICAL ISSUE [None]
